FAERS Safety Report 26158027 (Version 1)
Quarter: 2025Q4

REPORT INFORMATION
  Report Type: Spontaneous
  Country: US (occurrence: US)
  Receive Date: 20251215
  Receipt Date: 20251215
  Transmission Date: 20260117
  Serious: No
  Sender: Kenvue
  Company Number: US-KENVUE-20251107214

PATIENT
  Sex: Female

DRUGS (1)
  1. TYLENOL [Suspect]
     Active Substance: ACETAMINOPHEN
     Indication: Back pain
     Dosage: 1 DOSAGE FORM, AS NEEDED (ONCE EVERY FEW DAYS/EVERY COUPLE OF DAYS WHEN NEED THEM FOR YEARS)
     Route: 065

REACTIONS (1)
  - Incorrect dose administered [Unknown]
